FAERS Safety Report 4456344-0 (Version None)
Quarter: 2004Q3

REPORT INFORMATION
  Report Type: 
  Country: None (occurrence: None)
  Receive Date: 20040902
  Receipt Date: 20040601
  Transmission Date: 20050211
  Serious: No
  Sender: FDA-Public Use
  Company Number: 200417611BWH

PATIENT
  Age: 81 Year
  Sex: Male
  Weight: 83.9154 kg

DRUGS (7)
  1. LEVITRA [Suspect]
     Indication: ERECTILE DYSFUNCTION
     Dosage: 10; 20 MG, TOTAL DAILY, ORAL
     Route: 048
  2. LEVITRA [Suspect]
     Dosage: 30 MG, OW, ORAL
     Route: 048
  3. THEO-DUR [Concomitant]
  4. COMBIVENT [Concomitant]
  5. AEROBID [Concomitant]
  6. FORADIL [Concomitant]
  7. VIAGRA [Concomitant]

REACTIONS (1)
  - ERECTILE DYSFUNCTION [None]
